FAERS Safety Report 9402727 (Version 1)
Quarter: 2013Q3

REPORT INFORMATION
  Report Type: Spontaneous
  Country: US (occurrence: US)
  Receive Date: 20130716
  Receipt Date: 20130716
  Transmission Date: 20140515
  Serious: No
  Sender: FDA-Public Use
  Company Number: US-BAYER-2013-085705

PATIENT
  Age: 40 Year
  Sex: Female

DRUGS (3)
  1. GADAVIST [Suspect]
     Indication: NUCLEAR MAGNETIC RESONANCE IMAGING THORACIC
     Dosage: 10 ML, ONCE
     Dates: start: 20130711, end: 20130711
  2. GADAVIST [Suspect]
     Indication: PAIN
  3. GADAVIST [Suspect]
     Indication: RADICULOPATHY

REACTIONS (4)
  - Dizziness [None]
  - Headache [None]
  - Nausea [None]
  - Feeling hot [None]
